FAERS Safety Report 10522426 (Version 3)
Quarter: 2015Q1

REPORT INFORMATION
  Report Type: Report from Study
  Country: US (occurrence: US)
  Receive Date: 20141016
  Receipt Date: 20150121
  Transmission Date: 20150720
  Serious: Yes (Other)
  Sender: FDA-Public Use
  Company Number: US-ABBVIE-14K-163-1218341-00

PATIENT
  Age: 64 Year
  Sex: Female

DRUGS (1)
  1. HUMIRA [Suspect]
     Active Substance: ADALIMUMAB
     Indication: RHEUMATOID ARTHRITIS
     Route: 058
     Dates: start: 20130912

REACTIONS (8)
  - Spinal column stenosis [Not Recovered/Not Resolved]
  - Pyrexia [Recovered/Resolved]
  - Hypoaesthesia [Unknown]
  - Muscular weakness [Not Recovered/Not Resolved]
  - Pain [Unknown]
  - Rheumatoid arthritis [Unknown]
  - Neck surgery [Recovered/Resolved]
  - Hypoaesthesia [Not Recovered/Not Resolved]

NARRATIVE: CASE EVENT DATE: 20130912
